FAERS Safety Report 7455122-8 (Version None)
Quarter: 2011Q2

REPORT INFORMATION
  Report Type: 
  Country: None (occurrence: None)
  Receive Date: 20110503
  Receipt Date: 20110418
  Transmission Date: 20111010
  Serious: Yes (Hospitalization, Other)
  Sender: FDA-Public Use
  Company Number: US-BAYER-2011-005912

PATIENT
  Age: 32 Year
  Sex: Female
  Weight: 68.027 kg

DRUGS (7)
  1. FINACEA [Concomitant]
     Dosage: UNK UNK, BID
     Route: 061
  2. CRANBERRY TABLETS FOLIC ACID [Concomitant]
  3. ZOMIG [Concomitant]
     Dosage: UNK UNK, PRN
  4. SOLODYN [Concomitant]
     Dosage: 65 MG, QD
  5. MULTI-VITAMIN [Concomitant]
  6. DROSPIRENONE AND ETHINYL ESTRADIOL [Suspect]
     Indication: PRODUCT USED FOR UNKNOWN INDICATION
     Dosage: UNK
     Dates: start: 20030101, end: 20100319
  7. YASMIN [Suspect]
     Indication: PRODUCT USED FOR UNKNOWN INDICATION
     Dosage: UNK
     Dates: start: 20030101, end: 20100101

REACTIONS (2)
  - PAIN [None]
  - PULMONARY EMBOLISM [None]
